FAERS Safety Report 15451510 (Version 1)
Quarter: 2018Q3

REPORT INFORMATION
  Report Type: Spontaneous
  Country: US (occurrence: US)
  Receive Date: 20180927
  Receipt Date: 20180927
  Transmission Date: 20181010
  Serious: No
  Sender: FDA-Public Use
  Company Number: None

PATIENT
  Age: 36 Year
  Sex: Female
  Weight: 56.25 kg

DRUGS (3)
  1. SYNTHESIS [Concomitant]
  2. AIMOVIG [Suspect]
     Active Substance: ERENUMAB-AOOE
     Indication: MIGRAINE
     Dosage: ?          OTHER FREQUENCY:ONCE MONTHLY;OTHER ROUTE:INJECTED SUBQ?
     Dates: start: 20180628
  3. QUDEXY XR [Concomitant]
     Active Substance: TOPIRAMATE

REACTIONS (4)
  - Abdominal distension [None]
  - Abdominal pain upper [None]
  - Nausea [None]
  - Constipation [None]
